FAERS Safety Report 6027412-7 (Version None)
Quarter: 2009Q1

REPORT INFORMATION
  Report Type: 
  Country: None (occurrence: None)
  Receive Date: 20090105
  Receipt Date: 20081230
  Transmission Date: 20090719
  Serious: Yes (Hospitalization)
  Sender: FDA-Public Use
  Company Number: PHHO2008DE15363

PATIENT
  Sex: Female

DRUGS (5)
  1. MYFORTIC [Suspect]
     Indication: RENAL TRANSPLANT
     Dosage: 360 MG, BID
     Route: 048
     Dates: start: 20081109
  2. SANDIMMUNE [Suspect]
     Indication: RENAL TRANSPLANT
     Dosage: 200 MG, BID
     Route: 048
     Dates: start: 20081109
  3. SIMULECT [Suspect]
     Indication: RENAL TRANSPLANT
  4. NO TREATMENT RECEIVED NOMED [Suspect]
     Indication: RENAL TRANSPLANT
     Dosage: NO TREATMENT
  5. DECORTIN [Suspect]
     Indication: RENAL TRANSPLANT
     Dosage: 20 MG / DAY
     Route: 048
     Dates: start: 20081109

REACTIONS (3)
  - DIARRHOEA [None]
  - HYPOKALAEMIA [None]
  - METABOLIC ACIDOSIS [None]
